FAERS Safety Report 10145951 (Version 1)
Quarter: 2014Q2

REPORT INFORMATION
  Report Type: Spontaneous
  Country: GB (occurrence: GB)
  Receive Date: 20140501
  Receipt Date: 20140501
  Transmission Date: 20141212
  Serious: Yes (Hospitalization)
  Sender: FDA-Public Use
  Company Number: GB-BANPHARM-20142607

PATIENT
  Age: 30 Year
  Sex: Male

DRUGS (2)
  1. IBUPROFEN UNKNOWN PRODUCT [Suspect]
     Indication: PROSTATITIS
     Dosage: 1 DF, QD
     Dates: start: 20131207, end: 20131225
  2. MOXIFLOXACIN [Suspect]
     Indication: PROSTATITIS
     Dosage: 1 DF, QD
     Route: 048
     Dates: start: 20131207, end: 20131225

REACTIONS (8)
  - Arthritis [Not Recovered/Not Resolved]
  - Vitreous floaters [Not Recovered/Not Resolved]
  - Headache [Recovered/Resolved]
  - Muscle twitching [Not Recovered/Not Resolved]
  - Nervous system disorder [Unknown]
  - Eye pain [Recovered/Resolved]
  - Tendon pain [Recovering/Resolving]
  - Tinnitus [Not Recovered/Not Resolved]
